FAERS Safety Report 17569443 (Version 1)
Quarter: 2020Q1

REPORT INFORMATION
  Report Type: Report from Study
  Country: None (occurrence: US)
  Receive Date: 20200323
  Receipt Date: 20200323
  Transmission Date: 20200409
  Serious: Yes (Hospitalization)
  Sender: FDA-Public Use
  Company Number: US-ABBVIE-20K-163-3243788-00

PATIENT
  Sex: Male

DRUGS (2)
  1. VENCLEXTA [Suspect]
     Active Substance: VENETOCLAX
     Route: 048
     Dates: start: 20190722
  2. VENCLEXTA [Suspect]
     Active Substance: VENETOCLAX
     Indication: CHRONIC LYMPHOCYTIC LEUKAEMIA
     Route: 048
     Dates: start: 20181107

REACTIONS (4)
  - Subcutaneous abscess [Recovering/Resolving]
  - Asthenia [Not Recovered/Not Resolved]
  - Skin infection [Recovered/Resolved]
  - Immunodeficiency [Not Recovered/Not Resolved]

NARRATIVE: CASE EVENT DATE: 2019
